FAERS Safety Report 8805713 (Version 2)
Quarter: 2015Q1

REPORT INFORMATION
  Report Type: Report from Study
  Country: US (occurrence: US)
  Receive Date: 20120924
  Receipt Date: 20150319
  Transmission Date: 20150721
  Serious: Yes (Death)
  Sender: FDA-Public Use
  Company Number: US-ROCHE-1124788

PATIENT
  Sex: Female

DRUGS (16)
  1. AVASTIN [Suspect]
     Active Substance: BEVACIZUMAB
     Indication: METASTASES TO LYMPH NODES
  2. XELODA [Suspect]
     Active Substance: CAPECITABINE
     Indication: NEOPLASM MALIGNANT
     Route: 048
     Dates: start: 20080912
  3. OXYCONTIN [Concomitant]
     Active Substance: OXYCODONE HYDROCHLORIDE
     Route: 048
  4. AMITRIPTYLINE [Concomitant]
     Active Substance: AMITRIPTYLINE
     Route: 048
  5. XELODA [Suspect]
     Active Substance: CAPECITABINE
     Indication: METASTASES TO LYMPH NODES
  6. PROTONIX (UNITED STATES) [Concomitant]
     Route: 048
  7. COMPAZINE [Concomitant]
     Active Substance: PROCHLORPERAZINE MALEATE
     Dosage: 1 IN 4-6 HRS
     Route: 048
  8. SENNA-GEN [Concomitant]
     Dosage: PRN
     Route: 048
  9. AVASTIN [Suspect]
     Active Substance: BEVACIZUMAB
     Indication: NEOPLASM MALIGNANT
     Route: 065
  10. PHENERGAN [Concomitant]
     Active Substance: PROMETHAZINE HYDROCHLORIDE
     Dosage: PRN
     Route: 048
  11. HEPARIN [Concomitant]
     Active Substance: HEPARIN SODIUM
     Dosage: PRN
     Route: 042
  12. AMITRIPTYLINE [Concomitant]
     Active Substance: AMITRIPTYLINE
     Route: 048
  13. DIOVAN [Concomitant]
     Active Substance: VALSARTAN
     Route: 048
  14. OXYCODONE [Concomitant]
     Active Substance: OXYCODONE
     Dosage: 1-2 TABLET
     Route: 048
  15. GEMZAR [Concomitant]
     Active Substance: GEMCITABINE HYDROCHLORIDE
  16. SOMA [Concomitant]
     Active Substance: CARISOPRODOL
     Dosage: PRN
     Route: 048

REACTIONS (7)
  - Anaemia [Unknown]
  - Off label use [Unknown]
  - Death [Fatal]
  - Asthenia [Unknown]
  - Disease progression [Unknown]
  - Deafness [Unknown]
  - Pain [Unknown]
